FAERS Safety Report 22192522 (Version 1)
Quarter: 2023Q2

REPORT INFORMATION
  Report Type: Spontaneous
  Country: GB (occurrence: GB)
  Receive Date: 20230410
  Receipt Date: 20230410
  Transmission Date: 20230721
  Serious: Yes (Other)
  Sender: FDA-Public Use
  Company Number: None

PATIENT
  Age: 38 Year
  Sex: Female
  Weight: 62 kg

DRUGS (19)
  1. CIPROFLOXACIN [Suspect]
     Active Substance: CIPROFLOXACIN
     Dosage: FOR 14 DAYS AS DIRECTED
     Dates: start: 20211018
  2. AZITHROMYCIN [Concomitant]
     Active Substance: AZITHROMYCIN
     Dosage: 1 DF, 3X/WEEK
     Dates: start: 20211018
  3. CARBOCYSTEINE [Concomitant]
     Active Substance: CARBOCYSTEINE
     Dosage: 750 MG, 2X/DAY
     Dates: start: 20211018
  4. CEPHALORIDINE [Concomitant]
     Active Substance: CEPHALORIDINE
     Dosage: 1 DF, 1X/DAY (AS DIRECTED BY CONSULTANT GYNAEC)
     Dates: start: 20230304
  5. CETRABEN [LIGHT LIQUID PARAFFIN;WHITE SOFT PARAFFIN] [Concomitant]
     Dosage: AS DIRECTED
     Dates: start: 20211018
  6. DIBUCAINE [Concomitant]
     Active Substance: DIBUCAINE
     Dosage: 1 DF, 2X/DAY
     Dates: start: 20230308
  7. AMOXICILLIN\CLAVULANATE POTASSIUM [Concomitant]
     Active Substance: AMOXICILLIN\CLAVULANATE POTASSIUM
     Dosage: 1 DF, 3X/DAY (FOR 2 WEEKS)
     Dates: start: 20211018
  8. COTRIMOXAZOLE [Concomitant]
     Active Substance: SULFAMETHOXAZOLE\TRIMETHOPRIM
     Dosage: 960 MG/KG, 2X/DAY
     Dates: start: 20230328
  9. CHOLECALCIFEROL [Concomitant]
     Active Substance: CHOLECALCIFEROL
     Dosage: 1 DF, 1X/DAY (IN THE MORNING  WITH FOOD)
     Dates: start: 20220826
  10. COLISTIMETHATE SODIQUE MEDAC [Concomitant]
     Dosage: 1 DF, 2X/DAY (VIAL)
     Dates: start: 20211018
  11. FEXOFENADINE [Concomitant]
     Active Substance: FEXOFENADINE HYDROCHLORIDE
     Dosage: 1 DF, 1X/DAY
     Dates: start: 20211018
  12. FLUTICASONE PROPIONATE [Concomitant]
     Active Substance: FLUTICASONE PROPIONATE
     Dosage: APPLY HALF AN AMPOULE (6 DROPS) TO EACH SIDE OF...
     Dates: start: 20211018
  13. HYDROXYCHLOROQUINE SULFATE [Concomitant]
     Active Substance: HYDROXYCHLOROQUINE SULFATE
     Dosage: ANNUAL OPTHALMOLOGY CHECKS REQU...
     Dates: start: 20211018
  14. MEBEVERINE HYDROCHLORIDE [Concomitant]
     Active Substance: MEBEVERINE HYDROCHLORIDE
     Dosage: 1 DF, 3X/DAY (TWENTY MINUTE...)
     Dates: start: 20211018, end: 20230203
  15. MEFENAMIC ACID [Concomitant]
     Active Substance: MEFENAMIC ACID
     Dosage: DURING FIRST 3 DAYS OF PERIOD
     Dates: start: 20230103, end: 20230203
  16. SODIUM CHLORIDE [Concomitant]
     Active Substance: SODIUM CHLORIDE
     Dosage: USE 4ML TO RECONSTITUTE EACH VIAL OF COLOMYCIN
     Dates: start: 20211029
  17. TRANEXAMIC ACID [Concomitant]
     Active Substance: TRANEXAMIC ACID
     Dosage: 2 DF, 3X/DAY (DURING PERIOD)
     Dates: start: 20220809
  18. UVISTAT [MEXENONE] [Concomitant]
     Dosage: USE DAILY AS PER LUPUS CLINIC LETTER [REDACTED]
     Dates: start: 20220826
  19. VENTOLIN [Concomitant]
     Active Substance: ALBUTEROL SULFATE
     Dosage: INHALE TWO PUFFS UP TO FOUR TIMES A DAY AS REQU
     Route: 055
     Dates: start: 20211018

REACTIONS (2)
  - Myopathy [Recovering/Resolving]
  - Myalgia [Unknown]
